FAERS Safety Report 11376063 (Version 2)
Quarter: 2020Q3

REPORT INFORMATION
  Report Type: Spontaneous
  Country: GB (occurrence: GB)
  Receive Date: 20150813
  Receipt Date: 20151012
  Transmission Date: 20201104
  Serious: Yes (Death)
  Sender: FDA-Public Use
  Company Number: GB-ELI_LILLY_AND_COMPANY-GB201508003571

PATIENT
  Sex: Male
  Weight: 76.8 kg

DRUGS (14)
  1. ATORVASTATIN [Concomitant]
     Active Substance: ATORVASTATIN
     Indication: BLOOD CHOLESTEROL INCREASED
     Dosage: 40 MG, QD
     Route: 048
     Dates: start: 20020702, end: 20120602
  2. HYOSCINE BUTYLBROMIDE [Concomitant]
     Active Substance: BUTYLSCOPOLAMINE BROMIDE
     Indication: CHOLINERGIC SYNDROME
     Dosage: 20 MG, PRN
     Route: 058
     Dates: start: 20120604, end: 20120605
  3. SITAGLIPTIN [Concomitant]
     Active Substance: SITAGLIPTIN
     Indication: DIABETES MELLITUS
     Dosage: 100 MG, QD
     Route: 048
     Dates: start: 20110702, end: 20120602
  4. DALTEPARIN [Concomitant]
     Active Substance: DALTEPARIN
     Indication: THROMBOSIS
     Dosage: 1500 IU, QD
     Route: 058
     Dates: start: 20120415, end: 20120526
  5. NICORANDIL [Concomitant]
     Active Substance: NICORANDIL
     Indication: HYPOTENSION
     Dosage: 10 MG, BID
     Route: 048
     Dates: start: 20110702, end: 20120602
  6. GEMCITABINE HYDROCHLORIDE. [Suspect]
     Active Substance: GEMCITABINE HYDROCHLORIDE
     Indication: BILE DUCT CANCER
     Dosage: 1000 MG/M2, CYCLICAL
     Route: 065
  7. CISPLATINE [Suspect]
     Active Substance: CISPLATIN
     Indication: BILE DUCT CANCER
     Dosage: 25 MG/M2, CYCLICAL
     Route: 065
  8. CEDIRANIB. [Suspect]
     Active Substance: CEDIRANIB
     Indication: BILE DUCT CANCER
     Dosage: 20 MG, BID
     Route: 048
     Dates: start: 20120314, end: 20120410
  9. GLICAZIDA [Concomitant]
     Indication: DIABETES MELLITUS
     Dosage: 160 MG, BID
     Route: 048
     Dates: start: 20020702, end: 20120602
  10. RAMIPRIL. [Concomitant]
     Active Substance: RAMIPRIL
     Indication: HYPOTENSION
     Dosage: 5 MG, BID
     Route: 048
     Dates: start: 20020702, end: 20120602
  11. DIAMORPHINE [Concomitant]
     Active Substance: DIAMORPHINE
     Indication: PAIN
     Dosage: 2.5 MG, PRN
     Route: 058
     Dates: start: 20120602, end: 20120604
  12. HALOPERIDOL. [Concomitant]
     Active Substance: HALOPERIDOL
     Indication: SEDATION
     Dosage: 1 MG, QOD
     Route: 058
     Dates: start: 20120602, end: 20120602
  13. METFORMIN [Concomitant]
     Active Substance: METFORMIN HYDROCHLORIDE
     Indication: DIABETES MELLITUS
     Dosage: 850 MG, BID
     Route: 048
     Dates: start: 20020702, end: 20120602
  14. BACLOFEN. [Concomitant]
     Active Substance: BACLOFEN
     Indication: PAIN
     Dosage: 10 MG, QD
     Route: 048
     Dates: start: 20100702, end: 20120602

REACTIONS (2)
  - Peripheral ischaemia [Fatal]
  - Cerebrovascular accident [Fatal]
